FAERS Safety Report 12336816 (Version 1)
Quarter: 2016Q2

REPORT INFORMATION
  Report Type: Report from Study
  Country: CH (occurrence: CH)
  Receive Date: 20160505
  Receipt Date: 20160505
  Transmission Date: 20160815
  Serious: Yes (Other)
  Sender: FDA-Public Use
  Company Number: CH-ASTELLAS-2016US017335

PATIENT
  Age: 73 Year
  Sex: Female

DRUGS (3)
  1. DILZEM RR [Concomitant]
     Active Substance: DILTIAZEM HYDROCHLORIDE
     Indication: PRODUCT USED FOR UNKNOWN INDICATION
     Dosage: 90 (UNIT NOT REPORTED), UNIT 1, 1 DF, ONCE DAILY
     Route: 048
     Dates: start: 20141218, end: 20150120
  2. ERLOTINIB [Suspect]
     Active Substance: ERLOTINIB
     Indication: NON-SMALL CELL LUNG CANCER
     Dosage: 150 MG, ONCE DAILY, ACTUAL DOSE GIVEN 100MG
     Route: 048
     Dates: start: 20140221
  3. BEVACIZUMAB [Suspect]
     Active Substance: BEVACIZUMAB
     Indication: NON-SMALL CELL LUNG CANCER
     Dosage: 15 MG/KG, EVERY 3 WEEKS, ACTUAL DOSE 1100 MG
     Route: 042
     Dates: start: 20140221

REACTIONS (1)
  - Hypertension [Recovered/Resolved]

NARRATIVE: CASE EVENT DATE: 20150108
